FAERS Safety Report 7867158-3 (Version None)
Quarter: 2011Q4

REPORT INFORMATION
  Report Type: 
  Country: None (occurrence: None)
  Receive Date: 20111028
  Receipt Date: 20111021
  Transmission Date: 20120403
  Serious: Yes (Hospitalization)
  Sender: FDA-Public Use
  Company Number: US-BRISTOL-MYERS SQUIBB COMPANY-16184160

PATIENT
  Age: 76 Year
  Sex: Female
  Weight: 66 kg

DRUGS (6)
  1. CYTOXAN [Suspect]
     Indication: CHRONIC LYMPHOCYTIC LEUKAEMIA
     Dosage: 1 2 3  QCYCLE
     Route: 042
     Dates: start: 20110419, end: 20110622
  2. CYTOXAN [Suspect]
     Indication: B-CELL SMALL LYMPHOCYTIC LYMPHOMA
     Dosage: 1 2 3  QCYCLE
     Route: 042
     Dates: start: 20110419, end: 20110622
  3. RITUXAN [Suspect]
     Indication: B-CELL SMALL LYMPHOCYTIC LYMPHOMA
     Dosage: 1 2 3  QCYCLE
     Route: 042
     Dates: start: 20110419, end: 20110621
  4. FLUDARABINE PHOSPHATE [Suspect]
     Indication: CHRONIC LYMPHOCYTIC LEUKAEMIA
     Dosage: 1 2 3  QCYCLE
     Route: 042
     Dates: start: 20110419, end: 20110622
  5. FLUDARABINE PHOSPHATE [Suspect]
     Indication: B-CELL SMALL LYMPHOCYTIC LYMPHOMA
     Dosage: 1 2 3  QCYCLE
     Route: 042
     Dates: start: 20110419, end: 20110622
  6. RITUXAN [Suspect]
     Indication: CHRONIC LYMPHOCYTIC LEUKAEMIA
     Dosage: 1 2 3  QCYCLE
     Route: 042
     Dates: start: 20110419, end: 20110621

REACTIONS (2)
  - PANCYTOPENIA [None]
  - PYREXIA [None]
